FAERS Safety Report 8939721 (Version 1)
Quarter: 2012Q4

REPORT INFORMATION
  Report Type: 
  Country: IT (occurrence: IT)
  Receive Date: 20121201
  Receipt Date: 20121201
  Transmission Date: 20130627
  Serious: Yes (Other)
  Sender: FDA-Public Use
  Company Number: IT-ACCORD-015425

PATIENT
  Age: 61 Year
  Sex: Male

DRUGS (5)
  1. RANIDIL [Concomitant]
  2. IRINOTECAN HYDROCHLORIDE [Suspect]
     Indication: ADENOCARCINOMA OF THE PROSTATE METASTATIC
     Dosage: seventh administration
     Route: 042
     Dates: start: 20120803, end: 20120921
  3. SOLDESAM [Concomitant]
  4. LANSOPRAZOLE [Concomitant]
     Dosage: Home therapy: 1 tablet in the morning
  5. ZOFRAN [Concomitant]

REACTIONS (3)
  - Sialoadenitis [Recovering/Resolving]
  - Salivary hypersecretion [Recovering/Resolving]
  - Off label use [Unknown]
